FAERS Safety Report 6818494-0 (Version None)
Quarter: 2010Q3

REPORT INFORMATION
  Report Type: 
  Country: None (occurrence: None)
  Receive Date: 20100706
  Receipt Date: 20080611
  Transmission Date: 20110219
  Serious: No
  Sender: FDA-Public Use
  Company Number: US-PFIZER INC-2008051460

PATIENT
  Age: 39 Year
  Sex: Female

DRUGS (1)
  1. ZITHROMAX (SINGLE DOSE) [Suspect]
     Indication: CHLAMYDIAL INFECTION
     Dosage: SINGLE DOSE

REACTIONS (1)
  - DRUG INEFFECTIVE [None]
